FAERS Safety Report 22179236 (Version 1)
Quarter: 2023Q2

REPORT INFORMATION
  Report Type: Spontaneous
  Country: PL (occurrence: PL)
  Receive Date: 20230406
  Receipt Date: 20230406
  Transmission Date: 20230722
  Serious: Yes (Other)
  Sender: FDA-Public Use
  Company Number: PL-JNJFOC-20230374896

PATIENT

DRUGS (8)
  1. ACETAMINOPHEN [Suspect]
     Active Substance: ACETAMINOPHEN
     Indication: Analgesic therapy
     Route: 065
  2. IBUPROFEN [Suspect]
     Active Substance: IBUPROFEN
     Indication: Analgesic therapy
     Route: 065
  3. DICLOFENAC [Suspect]
     Active Substance: DICLOFENAC
     Indication: Analgesic therapy
     Route: 065
  4. KETOPROFEN [Suspect]
     Active Substance: KETOPROFEN
     Indication: Analgesic therapy
     Route: 065
  5. ASPIRIN [Suspect]
     Active Substance: ASPIRIN
     Indication: Analgesic therapy
     Route: 065
  6. NAPROXEN [Suspect]
     Active Substance: NAPROXEN
     Indication: Analgesic therapy
     Route: 065
  7. NIMESULIDE [Suspect]
     Active Substance: NIMESULIDE
     Indication: Analgesic therapy
     Route: 065
  8. METAMIZOLE [Suspect]
     Active Substance: METAMIZOLE
     Indication: Analgesic therapy
     Route: 065

REACTIONS (11)
  - Gastrointestinal haemorrhage [Unknown]
  - Gastric ulcer [Unknown]
  - Duodenal ulcer [Unknown]
  - Renal impairment [Unknown]
  - Bleeding time prolonged [Unknown]
  - Dizziness [Unknown]
  - Tinnitus [Unknown]
  - Hepatic function abnormal [Unknown]
  - Abdominal discomfort [Unknown]
  - Gastrointestinal disorder [Unknown]
  - Drug hypersensitivity [Unknown]
